FAERS Safety Report 5142724-7 (Version None)
Quarter: 2006Q4

REPORT INFORMATION
  Report Type: 
  Country: None (occurrence: None)
  Receive Date: 20061027
  Receipt Date: 20061013
  Transmission Date: 20070319
  Serious: No
  Sender: FDA-Public Use
  Company Number: 2006RL000366

PATIENT
  Age: 75 Year
  Sex: Male

DRUGS (1)
  1. RYTHMOL [Suspect]
     Indication: EXTRASYSTOLES
     Dates: start: 20020101

REACTIONS (1)
  - COMPLEX REGIONAL PAIN SYNDROME [None]
